FAERS Safety Report 20703375 (Version 1)
Quarter: 2022Q2

REPORT INFORMATION
  Report Type: Spontaneous
  Country: US (occurrence: US)
  Receive Date: 20220413
  Receipt Date: 20220413
  Transmission Date: 20220721
  Serious: No
  Sender: FDA-Public Use
  Company Number: US-JNJFOC-20220417955

PATIENT
  Age: 4 Decade
  Sex: Male

DRUGS (6)
  1. INVEGA SUSTENNA [Suspect]
     Active Substance: PALIPERIDONE PALMITATE
     Indication: Product used for unknown indication
     Route: 030
  2. INVEGA SUSTENNA [Suspect]
     Active Substance: PALIPERIDONE PALMITATE
  3. INVEGA SUSTENNA [Suspect]
     Active Substance: PALIPERIDONE PALMITATE
  4. RISPERIDONE [Concomitant]
     Active Substance: RISPERIDONE
     Indication: Product used for unknown indication
     Route: 048
  5. CAPLYTA [Concomitant]
     Active Substance: LUMATEPERONE
     Indication: Cognitive disorder
     Route: 065
  6. CAPLYTA [Concomitant]
     Active Substance: LUMATEPERONE
     Indication: Depression

REACTIONS (2)
  - Therapeutic response shortened [Unknown]
  - Condition aggravated [Unknown]
